FAERS Safety Report 25411616 (Version 1)
Quarter: 2025Q2

REPORT INFORMATION
  Report Type: Spontaneous
  Country: US (occurrence: US)
  Receive Date: 20250609
  Receipt Date: 20250609
  Transmission Date: 20250717
  Serious: Yes (Hospitalization, Other)
  Sender: Norvium Bioscience
  Company Number: US-Norvium Bioscience LLC-080235

PATIENT
  Age: 28 Year
  Sex: Male
  Weight: 0 kg

DRUGS (1)
  1. DIPHENHYDRAMINE HYDROCHLORIDE [Suspect]
     Active Substance: DIPHENHYDRAMINE HYDROCHLORIDE
     Indication: Product used for unknown indication

REACTIONS (5)
  - Intentional overdose [Unknown]
  - Electrocardiogram QRS complex prolonged [Unknown]
  - Cardiotoxicity [Unknown]
  - Hypotension [Recovered/Resolved]
  - Metabolic acidosis [Unknown]
